FAERS Safety Report 8570122-2 (Version None)
Quarter: 2012Q3

REPORT INFORMATION
  Report Type: 
  Country: None (occurrence: None)
  Receive Date: 20120803
  Receipt Date: 20120622
  Transmission Date: 20120928
  Serious: No
  Sender: FDA-Public Use
  Company Number: US-ABBOTT-12P-163-0948860-00

PATIENT
  Sex: Female

DRUGS (4)
  1. JANUMET [Concomitant]
     Indication: PRODUCT USED FOR UNKNOWN INDICATION
  2. ASCORBIC ACID [Concomitant]
     Indication: PRODUCT USED FOR UNKNOWN INDICATION
  3. ASPIRIN [Concomitant]
     Indication: PRODUCT USED FOR UNKNOWN INDICATION
  4. NIASPAN [Suspect]
     Indication: HYPERTENSION
     Dosage: AROUND 7:30 AFTER SUPPER; EXTENDED RELEASE
     Dates: start: 20120620

REACTIONS (3)
  - TENSION [None]
  - HEADACHE [None]
  - DIARRHOEA [None]
